FAERS Safety Report 25179030 (Version 1)
Quarter: 2025Q2

REPORT INFORMATION
  Report Type: Spontaneous
  Country: US (occurrence: US)
  Receive Date: 20250409
  Receipt Date: 20250409
  Transmission Date: 20250716
  Serious: No
  Sender: SANOFI AVENTIS
  Company Number: US-SA-2025SA100625

PATIENT
  Sex: Female
  Weight: 38 kg

DRUGS (16)
  1. LUMIZYME [Suspect]
     Active Substance: ALGLUCOSIDASE ALFA
     Indication: Glycogen storage disease type II
     Dosage: 1550 MG, QW
     Route: 042
  2. EPINEPHRINE [Concomitant]
     Active Substance: EPINEPHRINE
  3. CLARITIN [Concomitant]
     Active Substance: LORATADINE
  4. PULMICORT TURBUHALER [Concomitant]
     Active Substance: BUDESONIDE
  5. LACTULOSE [Concomitant]
     Active Substance: LACTULOSE
  6. NYSTATIN [Concomitant]
     Active Substance: NYSTATIN
  7. HEPARIN [Concomitant]
     Active Substance: HEPARIN SODIUM
  8. SODIUM CHLORIDE [Concomitant]
     Active Substance: SODIUM CHLORIDE
  9. DIPHENHYDRAMINE HYDROCHLORIDE [Concomitant]
     Active Substance: DIPHENHYDRAMINE HYDROCHLORIDE
  10. LEVALBUTEROL HYDROCHLORIDE [Concomitant]
     Active Substance: LEVALBUTEROL HYDROCHLORIDE
  11. MIRALAX [Concomitant]
     Active Substance: POLYETHYLENE GLYCOL 3350
  12. TOBRAMYCIN [Concomitant]
     Active Substance: TOBRAMYCIN
  13. TRETINOIN [Concomitant]
     Active Substance: TRETINOIN
  14. SODIUM CHLORIDE [Concomitant]
     Active Substance: SODIUM CHLORIDE
  15. STERILE WATER [Concomitant]
     Active Substance: WATER
  16. LIDOCAINE\PRILOCAINE [Concomitant]
     Active Substance: LIDOCAINE\PRILOCAINE

REACTIONS (2)
  - Wheelchair user [Unknown]
  - Inappropriate schedule of product administration [Unknown]
